FAERS Safety Report 5025352-3 (Version None)
Quarter: 2006Q2

REPORT INFORMATION
  Report Type: 
  Country: None (occurrence: None)
  Receive Date: 20060607
  Receipt Date: 20060530
  Transmission Date: 20061013
  Serious: Yes (Other)
  Sender: FDA-Public Use
  Company Number: 2006069774

PATIENT
  Age: 71 Year
  Sex: Female
  Weight: 90.7194 kg

DRUGS (1)
  1. BENADRYL [Suspect]
     Indication: URTICARIA
     Dosage: 1 KAPSEAL ONCE, ORAL
     Route: 048
     Dates: start: 20060530, end: 20060530

REACTIONS (4)
  - CHEST PAIN [None]
  - DYSPEPSIA [None]
  - DYSPNOEA [None]
  - URTICARIA [None]
